FAERS Safety Report 21475869 (Version 2)
Quarter: 2022Q4

REPORT INFORMATION
  Report Type: Report from Study
  Country: US (occurrence: None)
  Receive Date: 20221019
  Receipt Date: 20221020
  Transmission Date: 20230113
  Serious: Yes (Death, Hospitalization)
  Sender: FDA-Public Use
  Company Number: US-ROCHE-3128825

PATIENT
  Age: 80 Year
  Sex: Female

DRUGS (46)
  1. FARICIMAB [Suspect]
     Active Substance: FARICIMAB
     Indication: Diabetic retinal oedema
     Dosage: START DATE OF MOST RECENT DOSE OF STUDY DRUG PRIOR TO AE 01/JUN/2022
     Route: 050
     Dates: start: 20200819
  2. RANIBIZUMAB [Suspect]
     Active Substance: RANIBIZUMAB
     Indication: Diabetic retinal oedema
     Dosage: ON 16/JUL/2021, LAST RANIBIZUMAB WAS GIVEN IN THE FELLOW EYE
     Route: 065
     Dates: start: 20200819
  3. AFLIBERCEPT [Suspect]
     Active Substance: AFLIBERCEPT
     Indication: Diabetic retinal oedema
     Route: 065
     Dates: start: 20210820
  4. ISOSORBIDE [Concomitant]
     Active Substance: ISOSORBIDE
     Indication: Hypertension
     Route: 048
     Dates: start: 2013
  5. NIFEDIPINE [Concomitant]
     Active Substance: NIFEDIPINE
     Indication: Coronary artery disease
     Route: 048
     Dates: start: 2017
  6. JANUVIA [Concomitant]
     Active Substance: SITAGLIPTIN PHOSPHATE
     Indication: Diabetes mellitus
     Route: 048
     Dates: start: 2017
  7. ALLOPURINOL [Concomitant]
     Active Substance: ALLOPURINOL
     Indication: Gout
     Route: 048
  8. FUROSEMIDE [Concomitant]
     Active Substance: FUROSEMIDE
     Indication: Hypertension
     Route: 048
  9. FUROSEMIDE [Concomitant]
     Active Substance: FUROSEMIDE
     Route: 042
     Dates: start: 20220623, end: 20220624
  10. NITROSTAT [Concomitant]
     Active Substance: NITROGLYCERIN
     Indication: Coronary artery disease
     Route: 048
  11. ATORVASTATIN [Concomitant]
     Active Substance: ATORVASTATIN
     Indication: Hypercholesterolaemia
     Route: 048
  12. SOTALOL [Concomitant]
     Active Substance: SOTALOL
     Indication: Atrial fibrillation
     Route: 048
  13. CILOSTAZOL [Concomitant]
     Active Substance: CILOSTAZOL
     Indication: Peripheral ischaemia
     Route: 048
  14. CILOSTAZOL [Concomitant]
     Active Substance: CILOSTAZOL
     Route: 048
     Dates: start: 20200222
  15. CALCIUM [Concomitant]
     Active Substance: CALCIUM
     Route: 048
  16. ASPIRIN [Concomitant]
     Active Substance: ASPIRIN
     Indication: Coronary artery disease
     Route: 048
     Dates: end: 20220602
  17. COENZYME Q10 [Concomitant]
     Active Substance: DIETARY SUPPLEMENT\UBIDECARENONE
     Route: 048
  18. PROCRIT [Concomitant]
     Active Substance: ERYTHROPOIETIN
     Indication: Anaemia
     Route: 030
  19. ALBUTEROL [Concomitant]
     Active Substance: ALBUTEROL
     Indication: Emphysema
     Route: 055
  20. TREZIX [Concomitant]
     Active Substance: ACETAMINOPHEN\CAFFEINE\DIHYDROCODEINE BITARTRATE
     Indication: Back pain
     Route: 048
     Dates: start: 20180925
  21. PREGABALIN [Concomitant]
     Active Substance: PREGABALIN
     Indication: Arthritis
     Route: 048
     Dates: start: 20190701
  22. ZETIA [Concomitant]
     Active Substance: EZETIMIBE
     Indication: Hypercholesterolaemia
     Route: 048
     Dates: start: 20191021
  23. AMLODIPINE BESYLATE [Concomitant]
     Active Substance: AMLODIPINE BESYLATE
     Indication: Hypertension
     Route: 048
  24. ULORIC [Concomitant]
     Active Substance: FEBUXOSTAT
     Indication: Arthritis
     Route: 048
  25. APIXABAN [Concomitant]
     Active Substance: APIXABAN
     Indication: Atrial fibrillation
     Route: 048
     Dates: start: 20220603
  26. FARICIMAB [Concomitant]
     Active Substance: FARICIMAB
     Dosage: DOSE LAST STUDY DRUG ADMIN PRIOR AE 0.3 MG?START DATE OF MOST RECENT DOSE OF STUDY DRUG PRIOR TO AE
     Route: 050
  27. EPINEPHRINE [Concomitant]
     Active Substance: EPINEPHRINE
     Indication: Cardiac arrest
     Route: 042
     Dates: start: 20220629, end: 20220630
  28. VASOPRESSIN [Concomitant]
     Active Substance: VASOPRESSIN
     Indication: Hypotension
     Route: 042
     Dates: start: 20220629, end: 20220629
  29. AMIODARONE [Concomitant]
     Active Substance: AMIODARONE
     Indication: Atrial fibrillation
     Route: 048
     Dates: start: 20220623, end: 20220624
  30. MIDODRINE [Concomitant]
     Active Substance: MIDODRINE
     Indication: Hypotension
     Route: 048
     Dates: start: 20220624, end: 20220630
  31. SODIUM BICARBONATE [Concomitant]
     Active Substance: SODIUM BICARBONATE
     Indication: Metabolic acidosis
     Route: 041
     Dates: start: 20220629, end: 20220629
  32. VANCOMYCIN [Concomitant]
     Active Substance: VANCOMYCIN
     Indication: Infection
     Route: 042
     Dates: start: 20220629, end: 20220629
  33. CEFEPIME [Concomitant]
     Active Substance: CEFEPIME HYDROCHLORIDE
     Indication: Infection
     Route: 042
     Dates: start: 20220629, end: 20220629
  34. NOREPINEPHRINE [Concomitant]
     Active Substance: NOREPINEPHRINE
     Indication: Hypotension
     Route: 042
     Dates: start: 20220629, end: 20220629
  35. INSULIN GLARGINE [Concomitant]
     Active Substance: INSULIN GLARGINE
     Indication: Diabetes mellitus
     Route: 058
     Dates: start: 20220623, end: 20220630
  36. INSULIN LISPRO [Concomitant]
     Active Substance: INSULIN LISPRO
     Indication: Diabetes mellitus
     Route: 058
     Dates: start: 20220623, end: 20220630
  37. MISOPROSTOL [Concomitant]
     Active Substance: MISOPROSTOL
     Indication: Gastric ulcer
     Route: 048
     Dates: start: 20220623, end: 20220630
  38. ONDANSETRON [Concomitant]
     Active Substance: ONDANSETRON
     Indication: Nausea
     Route: 042
     Dates: start: 20220623, end: 20220630
  39. ONDANSETRON [Concomitant]
     Active Substance: ONDANSETRON
     Indication: Vomiting
  40. PANTOPRAZOLE [Concomitant]
     Active Substance: PANTOPRAZOLE
     Indication: Gastrooesophageal reflux disease
     Route: 048
     Dates: start: 20220623, end: 20220630
  41. PANTOPRAZOLE [Concomitant]
     Active Substance: PANTOPRAZOLE
     Indication: Dyspepsia
  42. SUCRALFATE [Concomitant]
     Active Substance: SUCRALFATE
     Indication: Gastric ulcer
     Route: 048
     Dates: start: 20220623, end: 20220630
  43. ACETAMINOPHEN [Concomitant]
     Active Substance: ACETAMINOPHEN
     Indication: Pain
     Route: 042
     Dates: start: 20220623, end: 20220630
  44. DOCUSATE SODIUM [Concomitant]
     Active Substance: DOCUSATE SODIUM
     Indication: Constipation
     Route: 048
     Dates: start: 20220623, end: 20220630
  45. FERROUS SULFATE [Concomitant]
     Active Substance: FERROUS SULFATE
     Route: 048
     Dates: start: 20220623, end: 20220630
  46. METOPROLOL [Concomitant]
     Active Substance: METOPROLOL
     Indication: Hypertension
     Route: 048
     Dates: start: 20220623, end: 20220629

REACTIONS (1)
  - Cardiac failure congestive [Fatal]

NARRATIVE: CASE EVENT DATE: 20220623
